FAERS Safety Report 16203281 (Version 1)
Quarter: 2019Q2

REPORT INFORMATION
  Report Type: Spontaneous
  Country: FR (occurrence: FR)
  Receive Date: 20190416
  Receipt Date: 20190416
  Transmission Date: 20190711
  Serious: Yes (Other)
  Sender: FDA-Public Use
  Company Number: FR-PFIZER INC-2019152369

PATIENT
  Age: 87 Year
  Sex: Male

DRUGS (11)
  1. CEFOXITIN [Suspect]
     Active Substance: CEFOXITIN SODIUM
     Indication: PROPHYLAXIS
     Dosage: 2 G, SINGLE
     Route: 042
     Dates: start: 20190314, end: 20190314
  2. TRAMADOL. [Suspect]
     Active Substance: TRAMADOL
     Indication: PROCEDURAL PAIN
     Dosage: 50 MG, SINGLE
     Route: 042
     Dates: start: 20190314, end: 20190314
  3. PARACETAMOL [Concomitant]
     Active Substance: ACETAMINOPHEN
     Indication: PAIN
     Dosage: 1 G, EVERY 6 HOURS
     Route: 042
     Dates: start: 20190314, end: 20190314
  4. CISATRACURIUM BESILATE [Suspect]
     Active Substance: CISATRACURIUM BESYLATE
     Indication: ANAESTHESIA
     Dosage: 54 MG, SINGLE
     Route: 042
     Dates: start: 20190314, end: 20190314
  5. NEFOPAM HYDROCHLORIDE [Suspect]
     Active Substance: NEFOPAM HYDROCHLORIDE
     Indication: PAIN
     Dosage: 20 MG, SINGLE
     Route: 042
     Dates: start: 20190314, end: 20190314
  6. DIPRIVAN [Suspect]
     Active Substance: PROPOFOL
     Dosage: 150 MG, EVERY HOUR
     Route: 042
     Dates: start: 20190314, end: 20190314
  7. METRONIDAZOLE. [Suspect]
     Active Substance: METRONIDAZOLE
     Indication: PROPHYLAXIS
     Dosage: 1000 MG, SINGLE
     Route: 042
     Dates: start: 20190314, end: 20190314
  8. NOREPINEPHRINE BITARTRATE. [Suspect]
     Active Substance: NOREPINEPHRINE BITARTRATE
     Indication: SOMNOLENCE
     Dosage: UNK
     Route: 042
     Dates: start: 20190314, end: 20190314
  9. ROPIVACAINE. [Suspect]
     Active Substance: ROPIVACAINE HYDROCHLORIDE
     Indication: PROCEDURAL PAIN
     Dosage: 12 MG, EVERY HOUR
     Route: 037
     Dates: start: 20190314, end: 20190315
  10. SUFENTANIL [Suspect]
     Active Substance: SUFENTANIL
     Indication: ANAESTHESIA
     Dosage: 10 UG, SINGLE
     Route: 042
     Dates: start: 20190314, end: 20190314
  11. KETAMINE [Suspect]
     Active Substance: KETAMINE
     Indication: ANAESTHESIA
     Dosage: 40 MG, SINGLE
     Route: 042
     Dates: start: 20190314, end: 20190314

REACTIONS (4)
  - Confusional state [Recovered/Resolved]
  - Hallucination, visual [Recovered/Resolved]
  - Hallucination, auditory [Recovered/Resolved]
  - Agitation [Recovered/Resolved]

NARRATIVE: CASE EVENT DATE: 20190314
